FAERS Safety Report 4480107-3 (Version None)
Quarter: 2004Q4

REPORT INFORMATION
  Report Type: 
  Country: None (occurrence: None)
  Receive Date: 20041018
  Receipt Date: 20041005
  Transmission Date: 20050328
  Serious: Yes (Death, Hospitalization)
  Sender: FDA-Public Use
  Company Number: K200401529

PATIENT
  Age: 20 Year
  Sex: Male

DRUGS (2)
  1. KETALAR [Suspect]
     Dosage: PARENTERAL
     Route: 051
  2. FELINE LEUKEMIA VACCINE() [Suspect]
     Dosage: PARENTERAL
     Route: 051

REACTIONS (6)
  - BLOOD GLUCOSE INCREASED [None]
  - CARDIAC ARREST [None]
  - COMA [None]
  - COMPLETED SUICIDE [None]
  - GENERAL PHYSICAL HEALTH DETERIORATION [None]
  - TACHYCARDIA [None]
